FAERS Safety Report 14101957 (Version 2)
Quarter: 2017Q4

REPORT INFORMATION
  Report Type: Spontaneous
  Country: SE (occurrence: SE)
  Receive Date: 20171018
  Receipt Date: 20171101
  Transmission Date: 20180321
  Serious: Yes (Death, Hospitalization, Other)
  Sender: FDA-Public Use
  Company Number: SE-AMGEN-SWESP2017156132

PATIENT
  Age: 98 Year
  Sex: Female

DRUGS (12)
  1. AMILORIDE [Concomitant]
     Active Substance: AMILORIDE
  2. TROMBYL [Concomitant]
     Active Substance: ASPIRIN
  3. FURIX [Concomitant]
     Active Substance: FUROSEMIDE
  4. BEHEPAN [Concomitant]
     Active Substance: HYDROXOCOBALAMIN
  5. LACTULOSE. [Concomitant]
     Active Substance: LACTULOSE
  6. KALCIPOS-D [Concomitant]
     Active Substance: CALCIUM CARBONATE\CHOLECALCIFEROL
  7. PROLIA [Suspect]
     Active Substance: DENOSUMAB
     Indication: OSTEOPOROSIS
     Dosage: 60 MG, UNK
     Route: 058
     Dates: start: 20170811, end: 20170811
  8. DIGOXIN BIOPHAUSIA [Concomitant]
     Active Substance: DIGOXIN
  9. NATRIUMKLORID ABCUR [Concomitant]
  10. PROPYLESS [Concomitant]
  11. VENTOLINE [Concomitant]
     Active Substance: ALBUTEROL
  12. LOSARTAN. [Concomitant]
     Active Substance: LOSARTAN

REACTIONS (2)
  - Hyponatraemia [Fatal]
  - Hypocalcaemia [Fatal]

NARRATIVE: CASE EVENT DATE: 20170825
